FAERS Safety Report 14373676 (Version 1)
Quarter: 2018Q1

REPORT INFORMATION
  Report Type: Spontaneous
  Country: US (occurrence: US)
  Receive Date: 20180110
  Receipt Date: 20180110
  Transmission Date: 20180509
  Serious: Yes (Other)
  Sender: FDA-Public Use
  Company Number: US-MAYNE PHARMA-2017MYN000021

PATIENT
  Age: 23 Year
  Sex: Female

DRUGS (1)
  1. LUTERA [Suspect]
     Active Substance: ETHINYL ESTRADIOL\LEVONORGESTREL
     Indication: CONTRACEPTION
     Dosage: LNG 100?G/EE 20?G
     Route: 048
     Dates: start: 201210, end: 201303

REACTIONS (1)
  - Deep vein thrombosis postoperative [Recovered/Resolved]

NARRATIVE: CASE EVENT DATE: 201303
